FAERS Safety Report 9395710 (Version 1)
Quarter: 2013Q3

REPORT INFORMATION
  Report Type: Report from Study
  Country: US (occurrence: US)
  Receive Date: 20130711
  Receipt Date: 20130711
  Transmission Date: 20140515
  Serious: Yes (Hospitalization)
  Sender: FDA-Public Use
  Company Number: US-ABBOTT-13P-163-1114882-00

PATIENT
  Age: 64 Year
  Sex: Female
  Weight: 93.52 kg

DRUGS (15)
  1. HUMIRA [Suspect]
     Indication: CROHN^S DISEASE
     Dates: start: 201111, end: 20130513
  2. LOTREL [Concomitant]
     Indication: HYPERTENSION
  3. ALDACTONE [Concomitant]
     Indication: HYPERTENSION
  4. ATENOLOL [Concomitant]
     Indication: MIGRAINE PROPHYLAXIS
  5. LEVSINEX [Concomitant]
     Indication: GASTROINTESTINAL PAIN
  6. PREMARIN [Concomitant]
     Indication: HORMONE REPLACEMENT THERAPY
  7. SIMVASTATIN [Concomitant]
     Indication: BLOOD CHOLESTEROL INCREASED
  8. SYNTHROID [Concomitant]
     Indication: HYPOTHYROIDISM
  9. CALCIUM [Concomitant]
     Indication: MINERAL SUPPLEMENTATION
  10. MAGNESIUM OXIDE [Concomitant]
     Indication: MINERAL SUPPLEMENTATION
  11. OMEGA 3 [Concomitant]
     Indication: SUPPLEMENTATION THERAPY
  12. TYLENOL ARTHRITIS [Concomitant]
     Indication: PAIN
     Dosage: PRN
  13. VITAMIN B 12 [Concomitant]
     Indication: VITAMIN SUPPLEMENTATION
  14. VITAMIN D3 [Concomitant]
     Indication: VITAMIN D DEFICIENCY
  15. VALTREX [Concomitant]
     Indication: ORAL HERPES
     Dosage: PRN

REACTIONS (2)
  - Female genital tract fistula [Recovering/Resolving]
  - Urinary tract infection [Recovered/Resolved]
